FAERS Safety Report 24288455 (Version 1)
Quarter: 2024Q3

REPORT INFORMATION
  Report Type: Report from Study
  Country: KR (occurrence: KR)
  Receive Date: 20240906
  Receipt Date: 20240906
  Transmission Date: 20241017
  Serious: Yes (Hospitalization, Other)
  Sender: EXELIXIS
  Company Number: KR-EXELIXIS-XL18424080526

PATIENT

DRUGS (15)
  1. CABOZANTINIB S-MALATE [Suspect]
     Active Substance: CABOZANTINIB S-MALATE
     Indication: Non-small cell lung cancer
     Dosage: 20 MILLIGRAM, QD
     Route: 048
     Dates: start: 20210308
  2. ATEZOLIZUMAB [Suspect]
     Active Substance: ATEZOLIZUMAB
     Indication: Non-small cell lung cancer
     Dosage: 1200 MILLIGRAM, Q3WEEKS
     Route: 042
     Dates: start: 20210308
  3. DURO CARE [Concomitant]
     Dosage: 0.5 MG, QD
     Route: 048
     Dates: start: 20240701
  4. Harutam sr [Concomitant]
     Dosage: 0.2 MG, QD
     Route: 048
     Dates: start: 20240701
  5. Scarocin [Concomitant]
     Dosage: 0.2 MG, QD
     Dates: start: 20240403, end: 20240630
  6. ASCORBIC ACID [Concomitant]
     Active Substance: ASCORBIC ACID
     Dosage: 100 MG, QD
     Dates: start: 20240731, end: 20240802
  7. PANTOPRAZOLE SODIUM [Concomitant]
     Active Substance: PANTOPRAZOLE SODIUM
     Dosage: 40 MG, QD (1 IN 1 TOTAL)
     Route: 042
     Dates: start: 20240731, end: 20240731
  8. GASTROMETO [Concomitant]
     Dosage: 5 MG, QD
     Route: 042
     Dates: start: 20240731, end: 20240802
  9. ENTELON [Concomitant]
     Dosage: 150 MG, BID
     Route: 048
     Dates: start: 20240731, end: 20240805
  10. RABIET [Concomitant]
     Dosage: 10 MG, BID
     Route: 048
     Dates: start: 20240731, end: 20240805
  11. FUROSEMIDE [Concomitant]
     Active Substance: FUROSEMIDE
     Dosage: 20 MG, QD
     Route: 048
     Dates: start: 20240731, end: 20240801
  12. MAGNESIUM HYDROXIDE [Concomitant]
     Active Substance: MAGNESIUM HYDROXIDE
     Indication: Constipation
     Dosage: 500 MG, PRN
     Route: 048
     Dates: start: 20240806
  13. Gaspin [Concomitant]
  14. SALINE [Concomitant]
     Active Substance: SODIUM CHLORIDE
  15. HIGHKADI [Concomitant]

REACTIONS (2)
  - Generalised oedema [Not Recovered/Not Resolved]
  - Hyponatraemia [Recovered/Resolved]

NARRATIVE: CASE EVENT DATE: 20240319
